FAERS Safety Report 4994181-9 (Version None)
Quarter: 2006Q2

REPORT INFORMATION
  Report Type: 
  Country: None (occurrence: None)
  Receive Date: 20060505
  Receipt Date: 20060503
  Transmission Date: 20061013
  Serious: Yes (Death, Hospitalization)
  Sender: FDA-Public Use
  Company Number: AU-BRISTOL-MYERS SQUIBB COMPANY-13365754

PATIENT
  Sex: Male
  Weight: 80 kg

DRUGS (5)
  1. ERBITUX [Suspect]
     Indication: COLORECTAL CANCER
     Route: 042
  2. AVASTIN [Suspect]
     Indication: COLORECTAL CANCER
     Dosage: TOTAL DOSE THIS COURSE: 455 MG.
     Route: 042
     Dates: start: 20060320, end: 20060320
  3. OXALIPLATIN [Suspect]
     Indication: COLORECTAL CANCER
     Route: 042
  4. LEUCOVORIN [Suspect]
     Indication: COLORECTAL CANCER
     Route: 042
  5. FLUOROURACIL [Suspect]
     Indication: COLORECTAL CANCER
     Route: 042

REACTIONS (6)
  - PNEUMONITIS [None]
  - PULMONARY EMBOLISM [None]
  - PULMONARY FIBROSIS [None]
  - RESPIRATORY FAILURE [None]
  - THERAPY NON-RESPONDER [None]
  - THROMBOSIS [None]
